FAERS Safety Report 9508066 (Version 2)
Quarter: 2013Q4

REPORT INFORMATION
  Report Type: Spontaneous
  Country: DE (occurrence: DE)
  Receive Date: 20130909
  Receipt Date: 20131002
  Transmission Date: 20140711
  Serious: Yes (Other)
  Sender: FDA-Public Use
  Company Number: GXKR2013DE002961

PATIENT
  Age: 62 Year
  Sex: Female
  Weight: 56.8 kg

DRUGS (5)
  1. LEFLUNOMID - 1 A PHARMA [Suspect]
     Dosage: 20 MG, QD
     Route: 048
  2. MTX [Concomitant]
     Dosage: 15 MG, QW
     Route: 058
  3. FOLSAEURE [Concomitant]
     Dosage: 5 MG, QW
     Route: 065
  4. LODOTRA [Concomitant]
     Dosage: 5 MG, QD
     Route: 048
  5. TRUSOPT [Concomitant]
     Dosage: 2 TIMES DAILY

REACTIONS (4)
  - Diarrhoea haemorrhagic [Recovered/Resolved]
  - Myalgia [Recovered/Resolved]
  - Arthralgia [Recovered/Resolved]
  - Muscular weakness [Recovered/Resolved]
